FAERS Safety Report 8719851 (Version 2)
Quarter: 2012Q4

REPORT INFORMATION
  Report Type: 
  Country: US (occurrence: US)
  Receive Date: 20120813
  Receipt Date: 20121231
  Transmission Date: 20130627
  Serious: Yes (Hospitalization)
  Sender: FDA-Public Use
  Company Number: US-BAYER-2012-079380

PATIENT
  Age: 47 Year
  Sex: Female

DRUGS (3)
  1. YAZ [Suspect]
     Indication: DYSMENORRHEA
     Dosage: UNK
     Dates: start: 200707, end: 200802
  2. YAZ [Suspect]
     Indication: MENOMETRORRHAGIA
  3. ADVIL [Concomitant]
     Dosage: Occasional

REACTIONS (6)
  - Pulmonary embolism [None]
  - Deep vein thrombosis [None]
  - Deep vein thrombosis [None]
  - Thrombosis [None]
  - Thrombophlebitis superficial [None]
  - Off label use [None]
